APPROVED DRUG PRODUCT: OPTIPRANOLOL
Active Ingredient: METIPRANOLOL HYDROCHLORIDE
Strength: 0.3% **Federal Register determination that product was not discontinued or withdrawn for safety or effectiveness reasons**
Dosage Form/Route: SOLUTION/DROPS;OPHTHALMIC
Application: N019907 | Product #001
Applicant: BAUSCH AND LOMB PHARMACEUTICALS INC
Approved: Dec 29, 1989 | RLD: Yes | RS: No | Type: DISCN